FAERS Safety Report 7623109-8 (Version None)
Quarter: 2011Q3

REPORT INFORMATION
  Report Type: 
  Country: None (occurrence: None)
  Receive Date: 20110720
  Receipt Date: 20110714
  Transmission Date: 20111222
  Serious: Yes (Hospitalization)
  Sender: FDA-Public Use
  Company Number: US-B.I. PHARMACEUTICALS,INC./RIDGEFIELD-2011-BP-15737BP

PATIENT
  Age: 80 Year
  Sex: Female
  Weight: 72.57 kg

DRUGS (1)
  1. PRADAXA [Suspect]
     Indication: ATRIAL FIBRILLATION
     Dates: end: 20110615

REACTIONS (4)
  - DYSPNOEA [None]
  - RASH [None]
  - HYPERSENSITIVITY [None]
  - LIP OEDEMA [None]
